FAERS Safety Report 16945742 (Version 1)
Quarter: 2019Q4

REPORT INFORMATION
  Report Type: Spontaneous
  Country: US (occurrence: US)
  Receive Date: 20191021
  Receipt Date: 20191021
  Transmission Date: 20200122
  Serious: No
  Sender: FDA-Public Use
  Company Number: None

PATIENT
  Age: 41 Year
  Sex: Female

DRUGS (1)
  1. OXYCODONE-ACETAMINOPHEN 5-325 [Suspect]
     Active Substance: ACETAMINOPHEN\OXYCODONE HYDROCHLORIDE
     Indication: SPINAL PAIN
     Dosage: ?          QUANTITY:1 TABLET(S);?
     Route: 048
     Dates: start: 20191017

REACTIONS (10)
  - Swelling face [None]
  - Swollen tongue [None]
  - Nausea [None]
  - Pharyngeal swelling [None]
  - Oropharyngeal pain [None]
  - Paranasal sinus discomfort [None]
  - Abdominal pain upper [None]
  - Ear discomfort [None]
  - Pain [None]
  - Tinnitus [None]

NARRATIVE: CASE EVENT DATE: 20191018
